FAERS Safety Report 13323878 (Version 1)
Quarter: 2017Q1

REPORT INFORMATION
  Report Type: Spontaneous
  Country: US (occurrence: US)
  Receive Date: 20170310
  Receipt Date: 20170310
  Transmission Date: 20170428
  Serious: No
  Sender: FDA-Public Use
  Company Number: US-PERRIGO-16US013899

PATIENT
  Sex: Female
  Weight: 68.93 kg

DRUGS (4)
  1. IBUPROFEN. [Suspect]
     Active Substance: IBUPROFEN
     Indication: OROPHARYNGEAL PAIN
     Dosage: 1/2 TABLET, SINGLE
     Route: 048
     Dates: start: 20160302, end: 20160302
  2. NORVASK                            /00972401/ [Concomitant]
     Indication: HYPERTENSION
     Dosage: UNK
     Route: 065
  3. IBUPROFEN. [Suspect]
     Active Substance: IBUPROFEN
     Indication: HEADACHE
     Dosage: 200 MG, SINGLE
     Route: 048
     Dates: start: 20160301, end: 20160301
  4. VITAMIN B12 [Concomitant]
     Active Substance: CYANOCOBALAMIN
     Indication: ROUTINE HEALTH MAINTENANCE
     Dosage: UNK
     Route: 065

REACTIONS (4)
  - Abdominal discomfort [Recovering/Resolving]
  - Drug administered to patient of inappropriate age [Recovered/Resolved]
  - Chest discomfort [Recovering/Resolving]
  - Palpitations [Recovering/Resolving]

NARRATIVE: CASE EVENT DATE: 20160301
